FAERS Safety Report 6647020-4 (Version None)
Quarter: 2010Q1

REPORT INFORMATION
  Report Type: 
  Country: None (occurrence: None)
  Receive Date: 20100323
  Receipt Date: 20100121
  Transmission Date: 20100710
  Serious: No
  Sender: FDA-Public Use
  Company Number: A0841011A

PATIENT
  Sex: Female

DRUGS (1)
  1. LAMICTAL CD [Suspect]
     Indication: PARTIAL SEIZURES
     Route: 048
     Dates: start: 20100101, end: 20100101

REACTIONS (1)
  - RASH [None]
